FAERS Safety Report 19030411 (Version 1)
Quarter: 2021Q1

REPORT INFORMATION
  Report Type: Spontaneous
  Country: US (occurrence: US)
  Receive Date: 20210319
  Receipt Date: 20210319
  Transmission Date: 20210420
  Serious: No
  Sender: FDA-Public Use
  Company Number: US-ELI_LILLY_AND_COMPANY-US202103008909

PATIENT
  Sex: Female

DRUGS (2)
  1. HUMULIN R U?500 [Suspect]
     Active Substance: INSULIN HUMAN
     Dosage: 75 U, UNKNOWN
     Route: 065
     Dates: start: 202102
  2. HUMULIN R U?500 [Suspect]
     Active Substance: INSULIN HUMAN
     Indication: PRODUCT USED FOR UNKNOWN INDICATION
     Dosage: 65 U, UNKNOWN
     Route: 065
     Dates: start: 202102

REACTIONS (1)
  - Blood glucose increased [Unknown]
